FAERS Safety Report 10066984 (Version 1)
Quarter: 2014Q2

REPORT INFORMATION
  Report Type: Report from Study
  Country: NL (occurrence: NL)
  Receive Date: 20140409
  Receipt Date: 20140409
  Transmission Date: 20141212
  Serious: Yes (Death)
  Sender: FDA-Public Use
  Company Number: PHHY2014NL041924

PATIENT
  Sex: Female

DRUGS (5)
  1. TOBI [Suspect]
     Indication: CHRONIC OBSTRUCTIVE PULMONARY DISEASE
     Dosage: ACCORDING TO 28 DAYS SCHEDULE
  2. TOBI [Suspect]
     Indication: BRONCHIECTASIS
  3. TOBI [Suspect]
     Indication: OFF LABEL USE
  4. PULMICORT [Concomitant]
     Dosage: UNK
  5. IPRAMOL [Concomitant]
     Dosage: UNK

REACTIONS (1)
  - Death [Fatal]
